FAERS Safety Report 18606548 (Version 1)
Quarter: 2020Q4

REPORT INFORMATION
  Report Type: Spontaneous
  Country: US (occurrence: US)
  Receive Date: 20201211
  Receipt Date: 20201211
  Transmission Date: 20210114
  Serious: Yes (Disabling)
  Sender: FDA-Public Use
  Company Number: US-TEVA-2020-US-1845685

PATIENT
  Age: 63 Year
  Sex: Female

DRUGS (14)
  1. LOMOTIL [Concomitant]
     Active Substance: ATROPINE SULFATE\DIPHENOXYLATE HYDROCHLORIDE
  2. VITAMINS [Concomitant]
     Active Substance: VITAMINS
  3. MOTRIN [Concomitant]
     Active Substance: IBUPROFEN
  4. DOCETAXEL. [Suspect]
     Active Substance: DOCETAXEL
     Indication: BREAST CANCER FEMALE
     Dosage: DOSAGE: 60MG/M2; NUMBER OF CYCLES: 04; EVERY THREE WEEKS
     Route: 065
     Dates: start: 20110808, end: 20111010
  5. SIMVASTATIN. [Concomitant]
     Active Substance: SIMVASTATIN
     Dosage: DOSAGE: 40MG
     Dates: start: 200801, end: 2014
  6. BENICAR [Concomitant]
     Active Substance: OLMESARTAN MEDOXOMIL
     Dosage: DOSAGE: 40/25MG
  7. TAXOTERE [Suspect]
     Active Substance: DOCETAXEL
     Indication: BREAST CANCER FEMALE
     Dosage: DOSAGE: 60MG/M2; NUMBER OF CYCLES: 04; EVERY THREE WEEKS
     Route: 065
     Dates: start: 20110808, end: 20111010
  8. CYTOXAN [Concomitant]
     Active Substance: CYCLOPHOSPHAMIDE
     Indication: BREAST CANCER FEMALE
     Dosage: DOSAGE: 500MG/M2; NUMBER OF CYCLES: 04; EVERY THREE WEEKS
     Route: 065
     Dates: start: 20110808, end: 20111010
  9. LOSARTAN POTASSIUM. [Concomitant]
     Active Substance: LOSARTAN POTASSIUM
  10. ASPIRIN. [Concomitant]
     Active Substance: ASPIRIN
     Dosage: DOSAGE: 81MG
  11. CALTRATE/VITAMIN D [Concomitant]
  12. ATENOLOL. [Concomitant]
     Active Substance: ATENOLOL
     Dosage: DOSAGE: 50MG
  13. WELLBUTRIN XL [Concomitant]
     Active Substance: BUPROPION HYDROCHLORIDE
     Dosage: DOSAGE: 300MG
  14. VICODIN [Concomitant]
     Active Substance: ACETAMINOPHEN\HYDROCODONE BITARTRATE
     Dosage: DOSAGE: 7.5MG

REACTIONS (3)
  - Hair texture abnormal [Not Recovered/Not Resolved]
  - Hair colour changes [Not Recovered/Not Resolved]
  - Alopecia areata [Not Recovered/Not Resolved]

NARRATIVE: CASE EVENT DATE: 201110
